FAERS Safety Report 15455682 (Version 1)
Quarter: 2018Q3

REPORT INFORMATION
  Report Type: Spontaneous
  Country: US (occurrence: US)
  Receive Date: 20180927
  Receipt Date: 20180927
  Transmission Date: 20181010
  Serious: Yes (Hospitalization)
  Sender: FDA-Public Use
  Company Number: None

PATIENT
  Age: 20 Year
  Sex: Female

DRUGS (16)
  1. ALBUTEROL. [Concomitant]
     Active Substance: ALBUTEROL
  2. VITAMIN D [Concomitant]
     Active Substance: CHOLECALCIFEROL
  3. MONTELUKAST 10 MG [Suspect]
     Active Substance: MONTELUKAST SODIUM
     Indication: CYSTIC FIBROSIS
     Route: 048
     Dates: start: 20180620
  4. URSODIOL. [Concomitant]
     Active Substance: URSODIOL
  5. LINZESS [Concomitant]
     Active Substance: LINACLOTIDE
  6. KITABIS PAK [Suspect]
     Active Substance: TOBRAMYCIN
     Indication: CYSTIC FIBROSIS
     Dosage: ORAL NU=RBULIZED
     Route: 048
     Dates: start: 20180330
  7. SODIUM CHLORIDE. [Concomitant]
     Active Substance: SODIUM CHLORIDE
  8. TRIAMCINOLONE [Concomitant]
     Active Substance: TRIAMCINOLONE
  9. PROAIR HFA [Concomitant]
     Active Substance: ALBUTEROL SULFATE
  10. PROMTHAZINE [Concomitant]
  11. HYDROCODONE BITARTRATE AND ACETAMINOPHEN [Concomitant]
     Active Substance: ACETAMINOPHEN\HYDROCODONE BITARTRATE
  12. CETIRIZINE [Concomitant]
     Active Substance: CETIRIZINE HYDROCHLORIDE
  13. PULMOZYME [Concomitant]
     Active Substance: DORNASE ALFA
  14. LINEZOLID. [Concomitant]
     Active Substance: LINEZOLID
  15. CREON [Concomitant]
     Active Substance: PANCRELIPASE AMYLASE\PANCRELIPASE LIPASE\PANCRELIPASE PROTEASE
  16. TRAMADOL. [Concomitant]
     Active Substance: TRAMADOL

REACTIONS (2)
  - Condition aggravated [None]
  - Cystic fibrosis [None]

NARRATIVE: CASE EVENT DATE: 20180917
